FAERS Safety Report 7791728-4 (Version None)
Quarter: 2011Q3

REPORT INFORMATION
  Report Type: 
  Country: None (occurrence: None)
  Receive Date: 20110930
  Receipt Date: 20110921
  Transmission Date: 20111222
  Serious: Yes (Hospitalization)
  Sender: FDA-Public Use
  Company Number: 1000024092

PATIENT
  Age: 31 Year
  Sex: Female

DRUGS (1)
  1. VIIBRYD [Suspect]
     Dates: start: 20110901, end: 20110901

REACTIONS (3)
  - SWELLING FACE [None]
  - HYPERSENSITIVITY [None]
  - ERYTHEMA [None]
